FAERS Safety Report 13580983 (Version 1)
Quarter: 2017Q2

REPORT INFORMATION
  Report Type: Spontaneous
  Country: US (occurrence: US)
  Receive Date: 20170525
  Receipt Date: 20170525
  Transmission Date: 20170830
  Serious: Yes (Disabling)
  Sender: FDA-Public Use
  Company Number: None

PATIENT
  Age: 39 Year
  Sex: Male
  Weight: 76.5 kg

DRUGS (4)
  1. PROBIOTICS [Concomitant]
     Active Substance: PROBIOTICS NOS
  2. OMEGA 3 [Concomitant]
     Active Substance: OMEGA-3 FATTY ACIDS
  3. TRIAMCINOLONE NE [Suspect]
     Active Substance: TRIAMCINOLONE
     Indication: ECZEMA
     Route: 061
     Dates: start: 20070101, end: 20150930
  4. FISH OIL [Concomitant]
     Active Substance: FISH OIL

REACTIONS (8)
  - Skin oedema [None]
  - Skin swelling [None]
  - Dry skin [None]
  - Drug use disorder [None]
  - Insomnia [None]
  - Drug ineffective [None]
  - Skin exfoliation [None]
  - Pruritus [None]
